FAERS Safety Report 9811551 (Version 1)
Quarter: 2014Q1

REPORT INFORMATION
  Report Type: Spontaneous
  Country: US (occurrence: US)
  Receive Date: 20140110
  Receipt Date: 20140110
  Transmission Date: 20141002
  Serious: Yes (Hospitalization)
  Sender: FDA-Public Use
  Company Number: US-SANOFI-AVENTIS-2013SA032611

PATIENT
  Age: 57 Year
  Sex: Male
  Weight: 76.65 kg

DRUGS (2)
  1. PLAVIX [Suspect]
     Route: 048
     Dates: start: 20100913
  2. PLAVIX [Suspect]
     Dates: start: 20130322

REACTIONS (9)
  - Myocardial infarction [Unknown]
  - Drug dose omission [Unknown]
  - Weight decreased [Unknown]
  - Fall [Unknown]
  - Spinal column injury [Unknown]
  - Paralysis [Unknown]
  - Intervertebral disc protrusion [Unknown]
  - Hypoaesthesia [Not Recovered/Not Resolved]
  - Ligament rupture [Unknown]
